FAERS Safety Report 12925051 (Version 1)
Quarter: 2016Q4

REPORT INFORMATION
  Report Type: Spontaneous
  Country: US (occurrence: US)
  Receive Date: 20161109
  Receipt Date: 20161109
  Transmission Date: 20170207
  Serious: Yes (Other)
  Sender: FDA-Public Use
  Company Number: US-BAYER-2016-209496

PATIENT
  Sex: Female
  Weight: 68.27 kg

DRUGS (2)
  1. TELMISARTAN. [Concomitant]
     Active Substance: TELMISARTAN
  2. PAIN STOPPER EXTRA [Suspect]
     Active Substance: ACETAMINOPHEN\ASPIRIN\CAFFEINE\SALICYLAMIDE
     Indication: PAIN
     Dosage: 2 DF, QD
     Route: 048
     Dates: end: 20161031

REACTIONS (4)
  - Therapeutic response unexpected [Unknown]
  - Drug dependence [Unknown]
  - Drug ineffective [Unknown]
  - Product use issue [Unknown]
